FAERS Safety Report 7677634-4 (Version None)
Quarter: 2011Q3

REPORT INFORMATION
  Report Type: 
  Country: None (occurrence: None)
  Receive Date: 20110811
  Receipt Date: 20110804
  Transmission Date: 20111222
  Serious: Yes (Other)
  Sender: FDA-Public Use
  Company Number: CO-MILLENNIUM PHARMACEUTICALS, INC.-2011-03448

PATIENT

DRUGS (5)
  1. DEXAMETHASONE [Concomitant]
     Indication: MULTIPLE MYELOMA
     Dosage: 40 MG, UNK
     Route: 042
  2. VELCADE [Suspect]
     Indication: PRODUCT USED FOR UNKNOWN INDICATION
     Dosage: 1.8 MG, UNK
     Route: 065
  3. RITUXIMAB [Concomitant]
     Dosage: 500 MG, UNK
     Route: 065
  4. DOPAMINE HCL [Concomitant]
     Dosage: UNK
     Route: 065
  5. AMIODARONE HCL [Concomitant]

REACTIONS (2)
  - CAPILLARY LEAK SYNDROME [None]
  - CARDIO-RESPIRATORY ARREST [None]
